FAERS Safety Report 7518789-1 (Version None)
Quarter: 2011Q2

REPORT INFORMATION
  Report Type: 
  Country: None (occurrence: None)
  Receive Date: 20110602
  Receipt Date: 20110520
  Transmission Date: 20111010
  Serious: No
  Sender: FDA-Public Use
  Company Number: US-PFIZER INC-2011115196

PATIENT
  Sex: Male
  Weight: 90.7 kg

DRUGS (7)
  1. CORTEF [Concomitant]
     Dosage: 30 MG, 1X/DAY
     Route: 048
  2. VITAMIN D [Concomitant]
     Dosage: 50000 IU, 1X/DAY FOR 2 WEEKS, THEN ONE WEEKLY FOR THE REMINDER OF 6 MONTHS
  3. TESTIM GEL [Concomitant]
     Dosage: 10 G, 1X/DAY
     Route: 061
  4. SYNTHROID [Concomitant]
     Dosage: 137 UG, 1X/DAY
     Route: 048
  5. LEXAPRO [Concomitant]
     Dosage: 5 MG, 1X/DAY
     Route: 048
  6. SOMAVERT [Suspect]
     Indication: ACROMEGALY
     Dosage: UNK MG, UNK
  7. IRON [Concomitant]
     Dosage: 325 MG, AS NEEDED, 2 TABLETS WEEKLY
     Route: 048

REACTIONS (1)
  - FATIGUE [None]
